FAERS Safety Report 5173223-4 (Version None)
Quarter: 2006Q4

REPORT INFORMATION
  Report Type: 
  Country: None (occurrence: None)
  Receive Date: 20061214
  Receipt Date: 20061204
  Transmission Date: 20070319
  Serious: Yes (Other)
  Sender: FDA-Public Use
  Company Number: 2006PK02574

PATIENT
  Age: 30 Year
  Sex: Female

DRUGS (7)
  1. OMEPRAZOLE [Suspect]
     Route: 048
     Dates: start: 20060925, end: 20060930
  2. SPASMOCANULASE [Suspect]
     Indication: ANAL SPASM
     Route: 048
     Dates: start: 20060925, end: 20060930
  3. ZOLPIDEM TARTRATE [Concomitant]
     Indication: INSOMNIA
     Route: 048
     Dates: start: 20060925, end: 20060930
  4. MOTILIUM [Concomitant]
     Indication: NAUSEA
     Route: 048
     Dates: start: 20060910, end: 20061008
  5. MOTILIUM [Concomitant]
     Indication: VOMITING
     Route: 048
     Dates: start: 20060910, end: 20061008
  6. IMODIUM [Concomitant]
     Indication: GASTROINTESTINAL INFLAMMATION
     Route: 048
     Dates: start: 20060910, end: 20060911
  7. BUSCOPAN [Concomitant]
     Route: 048
     Dates: start: 20060925, end: 20060930

REACTIONS (2)
  - DRUG EXPOSURE DURING PREGNANCY [None]
  - PREGNANCY [None]
